FAERS Safety Report 13113384 (Version 1)
Quarter: 2017Q1

REPORT INFORMATION
  Report Type: Spontaneous
  Country: JP (occurrence: JP)
  Receive Date: 20170113
  Receipt Date: 20170113
  Transmission Date: 20170428
  Serious: Yes (Other)
  Sender: FDA-Public Use
  Company Number: JP-JNJFOC-20170110999

PATIENT
  Age: 68 Year
  Sex: Male

DRUGS (5)
  1. RIUP X5 [Suspect]
     Active Substance: MINOXIDIL
     Route: 061
  2. RIUP [Suspect]
     Active Substance: MINOXIDIL
     Indication: PRODUCT USED FOR UNKNOWN INDICATION
     Dosage: AROUND 2006
     Route: 061
  3. RIUP [Suspect]
     Active Substance: MINOXIDIL
     Route: 061
  4. RIUP X5 PLUS LOTION [Suspect]
     Active Substance: MINOXIDIL
     Indication: ANDROGENETIC ALOPECIA
     Route: 061
  5. RIUP X5 [Suspect]
     Active Substance: MINOXIDIL
     Indication: PRODUCT USED FOR UNKNOWN INDICATION
     Dosage: AROUND 2014
     Route: 061

REACTIONS (2)
  - Colon cancer [Not Recovered/Not Resolved]
  - Body height decreased [Unknown]

NARRATIVE: CASE EVENT DATE: 2016
